FAERS Safety Report 9738269 (Version 2)
Quarter: 2013Q4

REPORT INFORMATION
  Report Type: Spontaneous
  Country: US (occurrence: US)
  Receive Date: 20131208
  Receipt Date: 20131208
  Transmission Date: 20140711
  Serious: No
  Sender: FDA-Public Use
  Company Number: -SAAVPROD-RENA-1001720

PATIENT
  Age: 66 Year
  Sex: Female

DRUGS (2)
  1. SEVELAMER CARBONATE [Suspect]
     Indication: HYPERPHOSPHATAEMIA
     Dosage: 1600 MG, BID, WITH MEALS
     Route: 065
     Dates: start: 2012
  2. SEVELAMER CARBONATE [Suspect]
     Indication: HYPERPHOSPHATAEMIA
     Dosage: 2.4 G, BID (WITH MEALS)
     Route: 065
     Dates: start: 20130122

REACTIONS (7)
  - Pain [Unknown]
  - Arthralgia [Unknown]
  - Night sweats [Unknown]
  - Pain in extremity [Recovered/Resolved]
  - Back pain [Unknown]
  - Tinnitus [Unknown]
  - Insomnia [Unknown]
